APPROVED DRUG PRODUCT: INGREZZA
Active Ingredient: VALBENAZINE TOSYLATE
Strength: EQ 80MG BASE
Dosage Form/Route: CAPSULE;ORAL
Application: N209241 | Product #002 | TE Code: AB
Applicant: NEUROCRINE BIOSCIENCES INC
Approved: Oct 4, 2017 | RLD: Yes | RS: Yes | Type: RX

PATENTS:
Patent 10065952 | Expires: Oct 28, 2036
Patent 8357697 | Expires: Nov 8, 2027
Patent 10874648 | Expires: Oct 10, 2037
Patent 10874648 | Expires: Oct 10, 2037
Patent 11311532 | Expires: Sep 18, 2038
Patent 10851104 | Expires: Oct 28, 2036
Patent 10857148 | Expires: Oct 10, 2037
Patent 10851103 | Expires: Oct 28, 2036
Patent 10857137 | Expires: Oct 10, 2037
Patent 10844058 | Expires: Oct 28, 2036
Patent 10952997 | Expires: Oct 10, 2037
Patent 10940141 | Expires: Aug 10, 2040
Patent 11654142 | Expires: Nov 14, 2038
Patent 11439629 | Expires: Oct 10, 2037
Patent 11311532 | Expires: Sep 18, 2038
Patent 11026939 | Expires: Sep 18, 2038
Patent 10912771 | Expires: Oct 10, 2037
Patent 10874648 | Expires: Oct 10, 2037
Patent 10851104 | Expires: Oct 28, 2036
Patent 10851103 | Expires: Oct 28, 2036
Patent 10844058 | Expires: Oct 28, 2036
Patent 10065952 | Expires: Oct 28, 2036
Patent 8357697 | Expires: Nov 8, 2027
Patent 10993941 | Expires: Oct 10, 2037
Patent 11026931 | Expires: Aug 14, 2039
Patent 11026939 | Expires: Sep 18, 2038
Patent 11040029 | Expires: Oct 10, 2037
Patent 10912771 | Expires: Oct 10, 2037
Patent 10912771 | Expires: Oct 10, 2037
Patent 10919892 | Expires: Dec 22, 2036
Patent 10906903 | Expires: Dec 22, 2036
Patent 10906902 | Expires: Dec 22, 2036
Patent 8039627 | Expires: Apr 11, 2031

EXCLUSIVITY:
Code: I-925 | Date: Aug 18, 2026
Code: ODE-440 | Date: Aug 18, 2030